FAERS Safety Report 5740722-3 (Version None)
Quarter: 2008Q2

REPORT INFORMATION
  Report Type: 
  Country: None (occurrence: None)
  Receive Date: 20080516
  Receipt Date: 20080505
  Transmission Date: 20081010
  Serious: Yes (Other)
  Sender: FDA-Public Use
  Company Number: US-PFIZER INC-2008003864

PATIENT
  Age: 47 Year
  Sex: Male
  Weight: 97.5 kg

DRUGS (4)
  1. CHANTIX [Suspect]
     Indication: TOBACCO USER
  2. PROTONIX [Concomitant]
  3. ATACAND [Concomitant]
  4. CITRUCEL [Concomitant]

REACTIONS (1)
  - IRRITABLE BOWEL SYNDROME [None]
